FAERS Safety Report 4820589-8 (Version None)
Quarter: 2005Q4

REPORT INFORMATION
  Report Type: 
  Country: None (occurrence: None)
  Receive Date: 20051104
  Receipt Date: 20051026
  Transmission Date: 20060501
  Serious: Yes (Other)
  Sender: FDA-Public Use
  Company Number: US-JNJFOC-20050800636

PATIENT
  Sex: Male
  Weight: 59.88 kg

DRUGS (3)
  1. REMICADE [Suspect]
     Indication: CROHN'S DISEASE
     Route: 042
  2. ANTIBIOTICS [Concomitant]
  3. CYCLOSPORINE [Concomitant]

REACTIONS (1)
  - ANAL CANCER [None]
